FAERS Safety Report 16973901 (Version 2)
Quarter: 2019Q4

REPORT INFORMATION
  Report Type: Spontaneous
  Country: US (occurrence: US)
  Receive Date: 20191030
  Receipt Date: 20191230
  Transmission Date: 20200122
  Serious: No
  Sender: FDA-Public Use
  Company Number: US-PFIZER INC-2019382095

PATIENT
  Age: 73 Year
  Sex: Female
  Weight: 97.51 kg

DRUGS (3)
  1. LYRICA [Suspect]
     Active Substance: PREGABALIN
     Indication: DIABETIC NEUROPATHY
     Dosage: 150 MG, 2X/DAY [TAKE 3 CAPSULES (150 MG) BY MOUTH 2 TIMES A DAY]
     Route: 048
  2. LYRICA [Suspect]
     Active Substance: PREGABALIN
     Indication: TYPE 2 DIABETES MELLITUS
     Dosage: 6 TIMES A DAY
  3. NITROSTAT [Concomitant]
     Active Substance: NITROGLYCERIN
     Indication: CHEST PAIN
     Dosage: 0.4 MG, AS NEEDED (DISSOLVE 1 TABLET (0.4 MG) UNDER THE TONGUE EVERY 5 MINUTES AS NEEDED)
     Route: 060

REACTIONS (1)
  - Drug ineffective [Unknown]
